FAERS Safety Report 7415479-0 (Version None)
Quarter: 2011Q2

REPORT INFORMATION
  Report Type: 
  Country: None (occurrence: None)
  Receive Date: 20110414
  Receipt Date: 20110403
  Transmission Date: 20111010
  Serious: Yes (Other)
  Sender: FDA-Public Use
  Company Number: US-JNJFOC-2010001386

PATIENT
  Age: 48 Year
  Sex: Female
  Weight: 95.3 kg

DRUGS (1)
  1. ROLAIDS ORIGINAL [Suspect]
     Indication: DYSPEPSIA
     Dosage: DAILY DOSE TEXT: 4-6 TABLETS IN ONE EVENING
     Route: 048
     Dates: start: 20100109, end: 20100110

REACTIONS (5)
  - VOMITING [None]
  - MALAISE [None]
  - ABDOMINAL PAIN UPPER [None]
  - DIARRHOEA [None]
  - IMPAIRED WORK ABILITY [None]
